FAERS Safety Report 6486542-6 (Version None)
Quarter: 2009Q4

REPORT INFORMATION
  Report Type: 
  Country: None (occurrence: None)
  Receive Date: 20091210
  Receipt Date: 20091123
  Transmission Date: 20100525
  Serious: No
  Sender: FDA-Public Use
  Company Number: US-JNJFOC-20091107034

PATIENT
  Sex: Female
  Weight: 44.45 kg

DRUGS (5)
  1. SANDOZ FENTANYL TRANSDERMAL SYSTEM [Suspect]
     Indication: FIBROMYALGIA
     Route: 062
  2. TRAZODONE [Concomitant]
     Indication: SLEEP DISORDER
     Route: 048
  3. PRILOSEC [Concomitant]
     Indication: GASTROOESOPHAGEAL REFLUX DISEASE
     Route: 048
  4. HORMONE REPLACEMENT [Concomitant]
     Indication: HORMONE REPLACEMENT THERAPY
     Route: 048
  5. MARIJUANA [Concomitant]
     Indication: PAIN MANAGEMENT

REACTIONS (6)
  - INCORRECT DRUG ADMINISTRATION RATE [None]
  - INSOMNIA [None]
  - NAUSEA [None]
  - PRURITUS GENERALISED [None]
  - PSYCHOMOTOR HYPERACTIVITY [None]
  - TREMOR [None]
